FAERS Safety Report 6761423-9 (Version None)
Quarter: 2010Q2

REPORT INFORMATION
  Report Type: 
  Country: None (occurrence: None)
  Receive Date: 20100608
  Receipt Date: 20100527
  Transmission Date: 20101027
  Serious: Yes (Other)
  Sender: FDA-Public Use
  Company Number: DE-ROCHE-700908

PATIENT
  Sex: Female
  Weight: 60 kg

DRUGS (3)
  1. AVASTIN [Suspect]
     Route: 042
     Dates: start: 20090624, end: 20091209
  2. XELODA [Suspect]
     Dosage: GIVEN ON DAY 1 TO 14, EVERY 3 WEEKS
     Route: 048
     Dates: start: 20091020, end: 20091124
  3. TAXOL [Concomitant]
     Dates: start: 20090501

REACTIONS (2)
  - IMPAIRED HEALING [None]
  - RADIATION SKIN INJURY [None]
